FAERS Safety Report 21699934 (Version 1)
Quarter: 2022Q4

REPORT INFORMATION
  Report Type: Spontaneous
  Country: US (occurrence: US)
  Receive Date: 20221208
  Receipt Date: 20221208
  Transmission Date: 20230112
  Serious: Yes (Other)
  Sender: FDA-Public Use
  Company Number: US-AMGEN-USASP2022210840

PATIENT
  Age: 67 Year
  Sex: Female

DRUGS (2)
  1. BEVACIZUMAB [Suspect]
     Active Substance: BEVACIZUMAB
     Indication: Product used for unknown indication
     Dosage: UNK
     Route: 065
  2. CARBOPLATIN [Suspect]
     Active Substance: CARBOPLATIN
     Indication: Product used for unknown indication
     Route: 065

REACTIONS (11)
  - Chronic kidney disease [Unknown]
  - Renal tubular atrophy [Recovered/Resolved]
  - Kidney fibrosis [Recovered/Resolved]
  - Renal tubular acidosis [Recovered/Resolved]
  - Renal tubular necrosis [Recovered/Resolved]
  - Tubulointerstitial nephritis [Recovered/Resolved]
  - Fanconi syndrome [Recovered/Resolved]
  - Renal tubular disorder [Recovered/Resolved]
  - Endometrial cancer metastatic [Unknown]
  - Metabolic acidosis [Recovered/Resolved]
  - Hypertension [Unknown]
